FAERS Safety Report 4882145-5 (Version None)
Quarter: 2006Q1

REPORT INFORMATION
  Report Type: 
  Country: None (occurrence: None)
  Receive Date: 20060117
  Receipt Date: 20051004
  Transmission Date: 20060701
  Serious: Yes (Hospitalization, Other)
  Sender: FDA-Public Use
  Company Number: US-MERCK-0510USA04002

PATIENT
  Age: 70 Year
  Sex: Female
  Weight: 55 kg

DRUGS (19)
  1. VIOXX [Suspect]
     Indication: ARTHRITIS
     Route: 048
     Dates: end: 20021219
  2. PREMARIN [Concomitant]
     Route: 048
  3. FERROUS SULFATE [Concomitant]
     Route: 048
  4. HYTRIN [Concomitant]
     Route: 048
  5. HYTRIN [Concomitant]
     Route: 048
  6. CATAPRES [Concomitant]
     Route: 048
  7. LOZOL [Concomitant]
     Route: 048
  8. PAMELOR [Concomitant]
     Route: 048
  9. XANAX [Concomitant]
     Route: 048
  10. ANTIVERT [Concomitant]
     Route: 048
  11. PHENERGAN SYRUP [Concomitant]
     Indication: NAUSEA
     Route: 048
  12. PHENERGAN SYRUP [Concomitant]
     Indication: VOMITING
     Route: 048
  13. VITAMIN E [Concomitant]
     Route: 048
  14. LORATADINE [Concomitant]
     Route: 048
  15. BECONASE AQ [Concomitant]
     Route: 055
  16. SYNTHROID [Concomitant]
     Route: 048
  17. THIOSOL [Concomitant]
     Route: 048
  18. DURADRIN [Concomitant]
     Indication: HEADACHE
     Route: 065
  19. HYDROCODONE BITARTRATE + ACETAMINOPHEN [Concomitant]
     Route: 048

REACTIONS (3)
  - CEREBELLAR INFARCTION [None]
  - CEREBROVASCULAR ACCIDENT [None]
  - LABILE HYPERTENSION [None]
